FAERS Safety Report 9994591 (Version 3)
Quarter: 2016Q1

REPORT INFORMATION
  Report Type: Spontaneous
  Country: FR (occurrence: FR)
  Receive Date: 20140311
  Receipt Date: 20160209
  Transmission Date: 20160526
  Serious: Yes (Other)
  Sender: FDA-Public Use
  Company Number: FR-BRISTOL-MYERS SQUIBB COMPANY-20397790

PATIENT
  Age: 82 Year
  Sex: Male

DRUGS (3)
  1. PACLITAXEL. [Suspect]
     Active Substance: PACLITAXEL
     Indication: METASTATIC MALIGNANT MELANOMA
     Dosage: JUN-2013 TO SEP-2013  02-JAN-2014 TO ONGOING
     Route: 065
     Dates: start: 201306
  2. CARBOPLATINE [Suspect]
     Active Substance: CARBOPLATIN
     Indication: METASTATIC MALIGNANT MELANOMA
     Dosage: JUN-2013 TO SEP-2013  02-JAN-2014 TO ONGOING
     Route: 065
     Dates: start: 201306
  3. YERVOY [Suspect]
     Active Substance: IPILIMUMAB
     Indication: METASTATIC MALIGNANT MELANOMA
     Dosage: 198 MG, UNK
     Route: 042
     Dates: start: 20130917, end: 20131119

REACTIONS (2)
  - Off label use [Unknown]
  - Organising pneumonia [Recovering/Resolving]

NARRATIVE: CASE EVENT DATE: 20131203
